FAERS Safety Report 12426981 (Version 1)
Quarter: 2016Q2

REPORT INFORMATION
  Report Type: Spontaneous
  Country: US (occurrence: US)
  Receive Date: 20160601
  Receipt Date: 20160601
  Transmission Date: 20160815
  Serious: No
  Sender: FDA-Public Use
  Company Number: US-SEPTODONT-201603281

PATIENT

DRUGS (2)
  1. BENZO-JEL 220 MG/G GEL, DENTIFRICE [Concomitant]
     Dosage: ADMINISTERED PRIOR TO INJECTION
  2. SEPTOCAINE AND EPINEPHRINE [Suspect]
     Active Substance: ARTICAINE HYDROCHLORIDE\EPINEPHRINE BITARTRATE
     Indication: LOCAL ANAESTHESIA
     Dosage: PERFORMED EXTRACTIONS, ROOT CANALS, FILLINGS USING 30G 25MM NEEDLE. USED 1-20 QUANTITY OF ANESTHETIC
     Route: 004

REACTIONS (1)
  - Drug ineffective [Unknown]
